FAERS Safety Report 18528314 (Version 1)
Quarter: 2020Q4

REPORT INFORMATION
  Report Type: Spontaneous
  Country: US (occurrence: US)
  Receive Date: 20201120
  Receipt Date: 20201120
  Transmission Date: 20210114
  Serious: Yes (Other)
  Sender: FDA-Public Use
  Company Number: US-PFIZER INC-2020455544

PATIENT
  Age: 40 Year
  Sex: Female

DRUGS (2)
  1. XELJANZ XR [Suspect]
     Active Substance: TOFACITINIB CITRATE
     Indication: RHEUMATOID ARTHRITIS
     Dosage: 11 MG, DAILY
     Route: 048
     Dates: start: 20200925, end: 20201109
  2. HUMIRA [Concomitant]
     Active Substance: ADALIMUMAB
     Dosage: 40 MG (40 MG EVERY OTHER WEEK ABOUT 3.5 MONTHS AGO)
     Dates: start: 202008

REACTIONS (3)
  - Vision blurred [Unknown]
  - Sinusitis [Unknown]
  - Hypertension [Recovering/Resolving]

NARRATIVE: CASE EVENT DATE: 20201103
